FAERS Safety Report 4676317-2 (Version None)
Quarter: 2005Q2

REPORT INFORMATION
  Report Type: 
  Country: None (occurrence: None)
  Receive Date: 20050527
  Receipt Date: 20050217
  Transmission Date: 20051028
  Serious: Yes (Other)
  Sender: FDA-Public Use
  Company Number: US-GLAXOSMITHKLINE-A0546347A

PATIENT
  Age: 39 Year
  Sex: Male

DRUGS (7)
  1. WELLBUTRIN XL [Suspect]
     Indication: ADJUSTMENT DISORDER WITH DEPRESSED MOOD
     Dosage: 300MG PER DAY
     Route: 048
     Dates: start: 20041124, end: 20050210
  2. EFFEXOR [Suspect]
     Indication: DRUG USE FOR UNKNOWN INDICATION
     Dosage: 75MG UNKNOWN
     Route: 048
     Dates: start: 20050202
  3. ZONEGRAN [Concomitant]
     Route: 065
  4. COZAAR [Concomitant]
  5. LIPITOR [Concomitant]
  6. GLUCOTROL [Concomitant]
  7. CIALIS [Concomitant]

REACTIONS (1)
  - CONVULSION [None]
